FAERS Safety Report 4699429-6 (Version None)
Quarter: 2005Q2

REPORT INFORMATION
  Report Type: 
  Country: None (occurrence: None)
  Receive Date: 20050621
  Receipt Date: 20050201
  Transmission Date: 20051028
  Serious: Yes (Life-Threatening)
  Sender: FDA-Public Use
  Company Number: ENTC2005-0033

PATIENT
  Age: 75 Year
  Sex: Female

DRUGS (19)
  1. STALEVO 100 [Suspect]
     Indication: PARKINSON'S DISEASE
     Dosage: 100/25/200 X 4
     Route: 048
     Dates: start: 20020112, end: 20050127
  2. MADOPAR [Suspect]
     Indication: PARKINSON'S DISEASE
     Dosage: 400 MG
     Route: 048
  3. COMTESS [Suspect]
     Indication: PARKINSON'S DISEASE
     Dosage: 1000 MG (200 MG, 5 IN 1 D)
     Route: 048
  4. MADOPAR DEPOT [Concomitant]
  5. SIFROL [Concomitant]
  6. AMANTADINE HCL [Concomitant]
  7. ASS 100 [Concomitant]
  8. NEXIUM [Concomitant]
  9. LISINOPRIL [Concomitant]
  10. HYDROCHLOROTHIAZIDE [Concomitant]
  11. ACIMETHIN [Concomitant]
  12. COTRIM DS [Concomitant]
  13. ZOPICLON [Concomitant]
  14. FEROO SANOL DUODENAL [Concomitant]
  15. CABASERIL [Concomitant]
  16. SPASYT [Concomitant]
  17. PANTOPRAZOLE SODIUM [Concomitant]
  18. DELIX PLUS [Concomitant]
  19. MADOPAR LT [Concomitant]

REACTIONS (2)
  - HYPOGLYCAEMIA [None]
  - TREATMENT NONCOMPLIANCE [None]
